FAERS Safety Report 9812747 (Version 2)
Quarter: 2014Q1

REPORT INFORMATION
  Report Type: Spontaneous
  Country: US (occurrence: US)
  Receive Date: 20140113
  Receipt Date: 20140210
  Transmission Date: 20141002
  Serious: Yes (Hospitalization)
  Sender: FDA-Public Use
  Company Number: US-B.I. PHARMACEUTICALS,INC./RIDGEFIELD-2014-BI-00984BP

PATIENT
  Age: 78 Year
  Sex: Female
  Weight: 59 kg

DRUGS (50)
  1. PRADAXA [Suspect]
     Indication: ATRIAL FIBRILLATION
     Dosage: 150 MG
     Route: 048
     Dates: start: 2009
  2. PRADAXA [Suspect]
     Dosage: 150 MG
     Route: 048
     Dates: start: 20130208
  3. PRADAXA [Suspect]
     Dosage: 150 MG
     Route: 048
     Dates: start: 20130813
  4. CYANOCOBALAMIN (VITAMIN B-12) [Concomitant]
     Dosage: 0.1 ML
     Route: 030
     Dates: start: 20130206
  5. CYANOCOBALAMIN (VITAMIN B-12) [Concomitant]
     Dosage: 1 ML
     Route: 030
     Dates: start: 20130422
  6. CYANOCOBALAMIN (VITAMIN B-12) [Concomitant]
     Dosage: 1 ML
     Route: 030
     Dates: start: 20131104
  7. CYCLOBENZAPRINE [Concomitant]
     Dates: start: 20130111
  8. CYCLOBENZAPRINE [Concomitant]
     Dates: start: 20130405
  9. CYCLOBENZAPRINE [Concomitant]
     Dosage: DAILY DOSE: 1/2 -1 TABLET TID
     Dates: start: 20130405
  10. DILT-XR [Concomitant]
     Dosage: 240 MG
     Dates: start: 20121230
  11. DILT-XR [Concomitant]
     Dosage: 240 MG
     Dates: start: 20130418
  12. DILT-XR [Concomitant]
     Dosage: 240 MG
     Dates: start: 20130624
  13. HYDROCODONE 5 MG- ACETAMINOPHEN 500 MG [Concomitant]
     Indication: PAIN
     Dosage: 4 ANZ
     Route: 048
     Dates: start: 20130220
  14. HYDROCODONE 5 MG- ACETAMINOPHEN 500 MG [Concomitant]
     Dosage: 4 ANZ
     Route: 048
     Dates: start: 20130321
  15. HYDROCODONE 5 MG- ACETAMINOPHEN 500 MG [Concomitant]
     Dosage: 6 ANZ
     Route: 048
     Dates: start: 20130607
  16. HYDROCODONE 5 MG- ACETAMINOPHEN 500 MG [Concomitant]
     Dosage: 6 ANZ
     Route: 048
     Dates: start: 20131011
  17. LOVAZA [Concomitant]
     Dosage: 2 ANZ
     Route: 048
     Dates: start: 20130113
  18. LOVAZA [Concomitant]
     Dosage: 2 ANZ
     Route: 048
     Dates: start: 20130418
  19. LOVAZA [Concomitant]
     Dosage: 2 ANZ
     Route: 048
     Dates: start: 20131021
  20. LUMIGAN [Concomitant]
     Dosage: 0.01 %
     Dates: start: 20130107
  21. LUMIGAN [Concomitant]
     Dosage: 0.01 %
     Dates: start: 20130612
  22. LUMIGAN [Concomitant]
     Dosage: 0.01 %
     Dates: start: 20131027
  23. MECLIZINE [Concomitant]
     Dates: start: 20130316
  24. MECLIZINE [Concomitant]
     Dosage: 100 MG
     Route: 048
     Dates: start: 20130328
  25. MECLIZINE [Concomitant]
     Dates: start: 20131025
  26. OXYTROL [Concomitant]
     Dosage: 3.9 MG
     Route: 062
     Dates: start: 20130122
  27. OXYTROL [Concomitant]
     Dosage: 3.9 MG
     Route: 062
     Dates: start: 20130507
  28. OXYTROL [Concomitant]
     Dosage: 3.9 MG
     Route: 062
     Dates: start: 20130919
  29. PAROXETINE [Concomitant]
     Dosage: 30 MG
     Route: 048
     Dates: start: 20121231
  30. PAROXETINE [Concomitant]
     Dosage: 30 MG
     Route: 048
     Dates: start: 20130418
  31. PAROXETINE [Concomitant]
     Dosage: 30 MG
     Route: 048
     Dates: start: 20130624
  32. WELCHOL [Concomitant]
     Dosage: 3 ANZ
     Route: 048
     Dates: start: 20130215
  33. WELCHOL [Concomitant]
     Dosage: 6 ANZ
     Route: 048
     Dates: start: 20130524
  34. CARVEDILOL [Concomitant]
     Dates: start: 20130316
  35. CARVEDILOL [Concomitant]
     Dosage: 12.5 MG
     Dates: start: 20130524
  36. LEVAQUIN [Concomitant]
     Dosage: 250 MG
     Route: 048
     Dates: start: 20130419, end: 20130426
  37. MEDROL (PAK) [Concomitant]
     Dates: start: 20130419
  38. ALPRAZOLAM [Concomitant]
     Dosage: 0.5 MG
     Route: 048
     Dates: start: 20120912
  39. ALPRAZOLAM [Concomitant]
     Dosage: 0.5 MG
     Route: 048
     Dates: start: 20130920
  40. CALCIUM 500 + D [Concomitant]
     Dosage: 1 ANZ
     Dates: start: 20121025
  41. CHLORPHENIRAMINE-HYDROCODONE ER [Concomitant]
     Dosage: DOSE PER APPLICATION: 8 MG-10 MG/ 5 ML
     Route: 048
     Dates: start: 20130419
  42. FLEXERIL [Concomitant]
     Dosage: DAILY DOSE: ONE HALF OR 1 TABLET 3 TIMES A DAY
     Route: 048
     Dates: start: 20130626
  43. MULTIVITAMIN [Concomitant]
     Dosage: 1 ANZ
     Dates: start: 20121025
  44. PAROXETINE [Concomitant]
     Dosage: 20 MG
     Route: 048
     Dates: start: 20120926
  45. PAROXETINE [Concomitant]
     Dosage: 30 MG
     Route: 048
     Dates: start: 20130418
  46. PROLIA [Concomitant]
     Dosage: 60 MG
     Route: 058
     Dates: start: 20130506
  47. PROLIA [Concomitant]
     Dosage: 60 MG
     Route: 058
     Dates: start: 20131104
  48. TRIMETHOPRIM [Concomitant]
     Dosage: 1 ANZ
     Route: 048
     Dates: start: 20121025
  49. DILTIAZEM ER [Concomitant]
     Dosage: 240 MG
     Dates: start: 20131022
  50. NITROFURANTOIN MACROCRYSTAL [Concomitant]
     Dates: start: 20131023

REACTIONS (1)
  - Cerebrovascular accident [Recovered/Resolved]
